FAERS Safety Report 7085251 (Version 1)
Quarter: 2020Q3

REPORT INFORMATION
  Report Type: Report from Study
  Country: NL (occurrence: NL)
  Receive Date: 20060209
  Receipt Date: 20060209
  Transmission Date: 20201105
  Serious: Yes (Hospitalization)
  Sender: FDA-Public Use
  Company Number: 2006AC00079

PATIENT
  Age: 21383 Day
  Sex: Male

DRUGS (4)
  1. CEDIRANIB. [Suspect]
     Active Substance: CEDIRANIB
     Indication: NEOPLASM MALIGNANT
     Route: 048
     Dates: start: 20051018
  2. GEFITINIB. [Suspect]
     Active Substance: GEFITINIB
     Indication: NEOPLASM MALIGNANT
     Route: 048
     Dates: start: 20051018
  3. CEDIRANIB. [Suspect]
     Active Substance: CEDIRANIB
     Indication: COLORECTAL CANCER
     Route: 048
     Dates: start: 20051018
  4. GEFITINIB. [Suspect]
     Active Substance: GEFITINIB
     Indication: COLORECTAL CANCER
     Route: 048
     Dates: start: 20051018

REACTIONS (3)
  - Nausea [Recovered/Resolved]
  - Fatigue [Recovered/Resolved]
  - Vomiting [None]

NARRATIVE: CASE EVENT DATE: 20051018
